FAERS Safety Report 9779182 (Version 4)
Quarter: 2014Q1

REPORT INFORMATION
  Report Type: Spontaneous
  Country: US (occurrence: US)
  Receive Date: 20131223
  Receipt Date: 20140228
  Transmission Date: 20141002
  Serious: No
  Sender: FDA-Public Use
  Company Number: US-PFIZER INC-2013366230

PATIENT
  Age: 44 Year
  Sex: Female
  Weight: 101 kg

DRUGS (3)
  1. LYRICA [Suspect]
     Indication: FIBROMYALGIA
     Dosage: 225 MG, 2X/DAY
     Route: 048
     Dates: start: 2009, end: 201311
  2. LYRICA [Suspect]
  3. OXYCODONE [Concomitant]
     Indication: INTERVERTEBRAL DISC DEGENERATION
     Dosage: 15 MG, DAILY

REACTIONS (6)
  - Pain [Unknown]
  - Constipation [Unknown]
  - Diarrhoea [Unknown]
  - Gastric disorder [Unknown]
  - Nausea [Unknown]
  - Headache [Unknown]
